FAERS Safety Report 6141191-4 (Version None)
Quarter: 2009Q1

REPORT INFORMATION
  Report Type: 
  Country: None (occurrence: None)
  Receive Date: 20090330
  Receipt Date: 20090330
  Transmission Date: 20090719
  Serious: Yes (Life-Threatening, Hospitalization, Other)
  Sender: FDA-Public Use
  Company Number: None

PATIENT
  Age: 41 Year
  Sex: Female
  Weight: 90.7194 kg

DRUGS (2)
  1. PROAIR HFA [Suspect]
     Indication: BRONCHITIS
     Dosage: 2 PUFFS EVERY 6 HOURS
     Dates: start: 20080430, end: 20080930
  2. PROVENTIL-HFA [Suspect]
     Indication: DRUG HYPERSENSITIVITY
     Dosage: 2 PUFFS EVERY 6 HOURS
     Dates: start: 20080930, end: 20081102

REACTIONS (15)
  - ASTHMA [None]
  - CHOKING [None]
  - CONDITION AGGRAVATED [None]
  - DIZZINESS [None]
  - DRUG DEPENDENCE [None]
  - DRUG INEFFECTIVE [None]
  - FEELING ABNORMAL [None]
  - HEADACHE [None]
  - INSOMNIA [None]
  - LUNG DISORDER [None]
  - MALAISE [None]
  - NAUSEA [None]
  - PALPITATIONS [None]
  - PRODUCT QUALITY ISSUE [None]
  - SPEECH DISORDER [None]
